FAERS Safety Report 8605543 (Version 2)
Quarter: 2013Q1

REPORT INFORMATION
  Report Type: Spontaneous
  Country: US (occurrence: US)
  Receive Date: 20120608
  Receipt Date: 20130109
  Transmission Date: 20140127
  Serious: Yes (Other)
  Sender: FDA-Public Use
  Company Number: US-UCBSA-058700

PATIENT
  Age: 36 Year
  Sex: Male

DRUGS (4)
  1. VIMPAT [Suspect]
     Indication: CONVULSION
     Dosage: STRENGTH: 200 MG
     Dates: start: 201104
  2. CLARITIN [Concomitant]
  3. DARVOCET-N [Concomitant]
     Dosage: 325 MG:50 MG
     Route: 048
  4. LAMICTAL XR [Concomitant]
     Dosage: TABLET EXTENDED REL-24 HR

REACTIONS (2)
  - Meningioma [Recovering/Resolving]
  - Amnesia [Unknown]
